FAERS Safety Report 6418064-2 (Version None)
Quarter: 2009Q4

REPORT INFORMATION
  Report Type: 
  Country: None (occurrence: None)
  Receive Date: 20091026
  Receipt Date: 20091013
  Transmission Date: 20100525
  Serious: Yes (Other)
  Sender: FDA-Public Use
  Company Number: ADR37962009

PATIENT
  Age: 73 Year
  Sex: Male

DRUGS (8)
  1. SIMVASTATIN [Suspect]
     Dosage: 40 MG, ORAL USE
     Route: 048
     Dates: start: 20070927, end: 20071223
  2. ADALAT LA 40 MG [Concomitant]
  3. ATENOLOL [Concomitant]
  4. BENDROFLUMETHIAZIDE 2.5 MG [Concomitant]
  5. GLICLAZIDE 80 MG [Concomitant]
  6. LIPITOR [Concomitant]
  7. METFORMIN HCL [Concomitant]
  8. RAMIPRIL [Concomitant]

REACTIONS (6)
  - ABDOMINAL PAIN UPPER [None]
  - FLATULENCE [None]
  - INSOMNIA [None]
  - MIGRAINE WITH AURA [None]
  - PAIN [None]
  - SWELLING FACE [None]
